FAERS Safety Report 8130865-1 (Version None)
Quarter: 2012Q1

REPORT INFORMATION
  Report Type: 
  Country: None (occurrence: None)
  Receive Date: 20120213
  Receipt Date: 20120208
  Transmission Date: 20120608
  Serious: No
  Sender: FDA-Public Use
  Company Number: US-PFIZER INC-2011257607

PATIENT
  Sex: Female

DRUGS (4)
  1. SUTENT [Suspect]
     Indication: NEUROENDOCRINE TUMOUR
     Dosage: 37.5 MG
     Dates: start: 20111020
  2. SANDOSTATIN [Concomitant]
     Dosage: UNK
     Dates: start: 20111020
  3. SUTENT [Suspect]
     Indication: PANCREATIC NEUROENDOCRINE TUMOUR
  4. SUTENT [Suspect]
     Indication: HEPATIC NEOPLASM MALIGNANT

REACTIONS (5)
  - RASH [None]
  - ABDOMINAL PAIN UPPER [None]
  - DIARRHOEA [None]
  - BODY TEMPERATURE INCREASED [None]
  - FLANK PAIN [None]
